FAERS Safety Report 9507778 (Version 1)
Quarter: 2013Q1

REPORT INFORMATION
  Report Type: Spontaneous
  Country: US (occurrence: None)
  Receive Date: 20130305
  Receipt Date: 20130305
  Transmission Date: 20140127
  Serious: Yes (Other)
  Sender: FDA-Public Use
  Company Number: 163-21880-12051147

PATIENT
  Age: 55 Year
  Sex: Male

DRUGS (4)
  1. REVLIMID (LENALIDOMIDE) (25 MILLIGRAM, CAPSULES) [Suspect]
     Indication: NON-HODGKIN^S LYMPHOMA
     Dosage: 21 IN 28 D
     Route: 048
     Dates: start: 20120312
  2. ACYCLOVIR (ACICLOVIR) (ACICLOVIR) [Concomitant]
  3. RITUXAN (RITUXIMAB) [Concomitant]
  4. LORTAB (VICODIN) [Concomitant]

REACTIONS (3)
  - Neutropenia [None]
  - Full blood count decreased [None]
  - White blood cell count decreased [None]
